FAERS Safety Report 11807957 (Version 1)
Quarter: 2015Q4

REPORT INFORMATION
  Report Type: Spontaneous
  Country: GB (occurrence: GB)
  Receive Date: 20151207
  Receipt Date: 20151207
  Transmission Date: 20160305
  Serious: Yes (Hospitalization)
  Sender: FDA-Public Use
  Company Number: GB-SA-2015SA196932

PATIENT
  Age: 88 Year
  Sex: Female
  Weight: 83 kg

DRUGS (1)
  1. ENOXAPARIN SODIUM. [Suspect]
     Active Substance: ENOXAPARIN SODIUM
     Indication: DEEP VEIN THROMBOSIS
     Dosage: HAD 2 DOSES.
     Route: 058
     Dates: start: 20151027

REACTIONS (4)
  - Pain [Unknown]
  - Haemorrhage [Recovering/Resolving]
  - Peripheral swelling [Unknown]
  - Haematoma [Unknown]

NARRATIVE: CASE EVENT DATE: 20151027
